FAERS Safety Report 15833943 (Version 1)
Quarter: 2019Q1

REPORT INFORMATION
  Report Type: Other
  Country: US (occurrence: US)
  Receive Date: 20190116
  Receipt Date: 20190116
  Transmission Date: 20190417
  Serious: Yes (Hospitalization, Other)
  Sender: FDA-Public Use
  Company Number: US-ACIC FINE CHEMICALS INC-2061249

PATIENT
  Age: 4 Year
  Weight: 14 kg

DRUGS (4)
  1. FRESH FROZEN PLASMA [Concomitant]
     Active Substance: HUMAN PLASMA
  2. PACKED RED BLOOD CELLS [Concomitant]
     Active Substance: HUMAN RED BLOOD CELL
  3. TRANEXAMIC ACID. [Suspect]
     Active Substance: TRANEXAMIC ACID
  4. TRANEXAMIC ACID. [Suspect]
     Active Substance: TRANEXAMIC ACID
     Route: 040

REACTIONS (1)
  - Thrombosis [Recovered/Resolved]
